FAERS Safety Report 9240137 (Version 1)
Quarter: 2013Q2

REPORT INFORMATION
  Report Type: Spontaneous
  Country: US (occurrence: None)
  Receive Date: 20130418
  Receipt Date: 20130418
  Transmission Date: 20140414
  Serious: No
  Sender: FDA-Public Use
  Company Number: None

PATIENT
  Age: 52 Year
  Sex: Male

DRUGS (1)
  1. SNORESTOP 120 FAST-ACTING EXTINGUISHER THROAT [Suspect]
     Dosage: 2 SPRAYS EA. NIGHT

REACTIONS (1)
  - Aphagia [None]
